FAERS Safety Report 9313102 (Version 1)
Quarter: 2013Q2

REPORT INFORMATION
  Report Type: Spontaneous
  Country: US (occurrence: US)
  Receive Date: 20130528
  Receipt Date: 20130528
  Transmission Date: 20140414
  Serious: No
  Sender: FDA-Public Use
  Company Number: US-ABBOTT-13P-163-1083637-00

PATIENT
  Sex: Male
  Weight: 119.86 kg

DRUGS (4)
  1. ANDROGEL [Suspect]
     Indication: BLOOD TESTOSTERONE DECREASED
     Route: 061
     Dates: start: 201208
  2. VITAMIN C [Concomitant]
     Indication: VITAMIN SUPPLEMENTATION
  3. SELENIUM [Concomitant]
     Indication: SUPPLEMENTATION THERAPY
  4. LYCOPENE [Concomitant]
     Indication: SUPPLEMENTATION THERAPY

REACTIONS (1)
  - Accidental exposure to product [Not Recovered/Not Resolved]
